FAERS Safety Report 18275470 (Version 1)
Quarter: 2020Q3

REPORT INFORMATION
  Report Type: Spontaneous
  Country: US (occurrence: US)
  Receive Date: 20200916
  Receipt Date: 20200916
  Transmission Date: 20201103
  Serious: Yes (Death, Other)
  Sender: FDA-Public Use
  Company Number: US-EPIC PHARMA LLC-2020EPC00270

PATIENT
  Sex: Male

DRUGS (1)
  1. OXYMORPHONE [Suspect]
     Active Substance: OXYMORPHONE

REACTIONS (3)
  - Cardiomegaly [Unknown]
  - Pulmonary congestion [Unknown]
  - Overdose [Fatal]
